FAERS Safety Report 12461361 (Version 1)
Quarter: 2016Q2

REPORT INFORMATION
  Report Type: Spontaneous
  Country: US (occurrence: US)
  Receive Date: 20160613
  Receipt Date: 20160613
  Transmission Date: 20160815
  Serious: No
  Sender: FDA-Public Use
  Company Number: US-US WORLDMEDS, LLC-USW201511-000350

PATIENT
  Age: 72 Year
  Sex: Female

DRUGS (22)
  1. APOKYN [Suspect]
     Active Substance: APOMORPHINE HYDROCHLORIDE
     Indication: PARKINSON^S DISEASE
     Route: 058
     Dates: start: 20151123, end: 20151123
  2. CALCIUM CARBONATE. [Concomitant]
     Active Substance: CALCIUM CARBONATE
     Route: 048
  3. COMBIVENT RESPIMAT [Concomitant]
     Active Substance: ALBUTEROL SULFATE\IPRATROPIUM BROMIDE
  4. NEXIUM [Concomitant]
     Active Substance: ESOMEPRAZOLE MAGNESIUM
  5. TIGAN [Concomitant]
     Active Substance: TRIMETHOBENZAMIDE HYDROCHLORIDE
  6. LIORESAL [Concomitant]
     Active Substance: BACLOFEN
     Route: 048
  7. ENABLEX [Concomitant]
     Active Substance: DARIFENACIN HYDROBROMIDE
     Route: 048
  8. CARDIZEM LA [Concomitant]
     Active Substance: DILTIAZEM HYDROCHLORIDE
  9. PROAIR HFA/ ACTUATION INHALER [Concomitant]
  10. PENLAC [Concomitant]
     Active Substance: CICLOPIROX
  11. SPIRIVA [Concomitant]
     Active Substance: TIOTROPIUM BROMIDE MONOHYDRATE
  12. ASPIRIN. [Concomitant]
     Active Substance: ASPIRIN
     Route: 048
  13. SINEMET [Concomitant]
     Active Substance: CARBIDOPA\LEVODOPA
     Route: 048
  14. VITAMIN D [Concomitant]
     Active Substance: CHOLECALCIFEROL
     Route: 048
  15. FLOVENT HFA [Concomitant]
     Active Substance: FLUTICASONE PROPIONATE
  16. NEURONTIN [Concomitant]
     Active Substance: GABAPENTIN
     Route: 048
  17. POTASSIUM CHLORIDE. [Concomitant]
     Active Substance: POTASSIUM CHLORIDE
     Route: 048
  18. ZOCOR [Concomitant]
     Active Substance: SIMVASTATIN
     Route: 048
  19. CYMBALTA [Concomitant]
     Active Substance: DULOXETINE HYDROCHLORIDE
     Route: 048
  20. MIRALAX [Concomitant]
     Active Substance: POLYETHYLENE GLYCOL 3350
  21. LASIX [Concomitant]
     Active Substance: FUROSEMIDE
     Route: 048
  22. IMITREX [Concomitant]
     Active Substance: SUMATRIPTAN SUCCINATE

REACTIONS (1)
  - Blood pressure increased [Recovered/Resolved]

NARRATIVE: CASE EVENT DATE: 20151123
